FAERS Safety Report 25285679 (Version 3)
Quarter: 2025Q3

REPORT INFORMATION
  Report Type: Spontaneous
  Country: US (occurrence: US)
  Receive Date: 20250509
  Receipt Date: 20250725
  Transmission Date: 20251021
  Serious: No
  Sender: STALLERGENES
  Company Number: US-STALCOR-2025-AER-01111

PATIENT
  Age: 6 Year
  Sex: Male

DRUGS (3)
  1. PALFORZIA [Suspect]
     Active Substance: PEANUT
     Indication: Food allergy
     Dosage: REACTIVE DOSE AT TIME OF AE ONSET?LVL 6 AT 20MGX4: MIX CONTENTS OF CAPSULES WELL WITH SEMISOLID FOOD
     Route: 048
  2. PALFORZIA [Suspect]
     Active Substance: PEANUT
     Dosage: UP DOSED ON 16-APR-2025
     Route: 048
     Dates: start: 20250416
  3. PALFORZIA [Suspect]
     Active Substance: PEANUT
     Dosage: LEVEL 9 COMPLETED ON 14-MAY-2025
     Route: 048

REACTIONS (3)
  - Eczema [Recovered/Resolved]
  - Condition aggravated [Recovered/Resolved]
  - Therapy interrupted [Recovered/Resolved]

NARRATIVE: CASE EVENT DATE: 20250402
